FAERS Safety Report 16301652 (Version 1)
Quarter: 2019Q2

REPORT INFORMATION
  Report Type: Spontaneous
  Country: US (occurrence: US)
  Receive Date: 20190511
  Receipt Date: 20190511
  Transmission Date: 20190711
  Serious: Yes (Other)
  Sender: FDA-Public Use
  Company Number: US-TEVA-2019-US-1047418

PATIENT
  Age: 71 Year
  Sex: Female
  Weight: 82 kg

DRUGS (1)
  1. QVAR REDIHALER [Suspect]
     Active Substance: BECLOMETHASONE DIPROPIONATE
     Indication: COUGH
     Dosage: ONE PUFF TWICE A DAY
     Route: 065
     Dates: start: 20190322, end: 20190426

REACTIONS (9)
  - Aptyalism [Unknown]
  - Lip swelling [Unknown]
  - Dry mouth [Unknown]
  - Sensory loss [Unknown]
  - Oral pain [Unknown]
  - Glossodynia [Unknown]
  - Palate injury [Unknown]
  - Swollen tongue [Unknown]
  - Choking sensation [Unknown]

NARRATIVE: CASE EVENT DATE: 201904
